FAERS Safety Report 18847902 (Version 2)
Quarter: 2021Q1

REPORT INFORMATION
  Report Type: Spontaneous
  Country: US (occurrence: US)
  Receive Date: 20210204
  Receipt Date: 20210324
  Transmission Date: 20210419
  Serious: No
  Sender: FDA-Public Use
  Company Number: US-PFIZER INC-2021101603

PATIENT
  Age: 57 Year
  Sex: Female
  Weight: 145.15 kg

DRUGS (3)
  1. IBRANCE [Suspect]
     Active Substance: PALBOCICLIB
     Dosage: 125 MG, CYCLIC [1 CAPSULE BY MOUTH FOR 21 DAYS THAN OFF FOR 7 DAYS]
     Route: 048
     Dates: start: 202010, end: 202011
  2. IBRANCE [Suspect]
     Active Substance: PALBOCICLIB
     Dosage: 100 MG, CYCLIC (X 21)
     Route: 048
  3. IBRANCE [Suspect]
     Active Substance: PALBOCICLIB
     Indication: BREAST CANCER METASTATIC
     Dosage: 125 MG, CYCLIC [1 CAPSULE BY MOUTH FOR 21 DAYS THAN OFF FOR 7 DAYS]
     Route: 048
     Dates: start: 201812, end: 202002

REACTIONS (4)
  - Diarrhoea [Unknown]
  - Nausea [Unknown]
  - Fatigue [Unknown]
  - Illness [Unknown]

NARRATIVE: CASE EVENT DATE: 202002
